FAERS Safety Report 6807708-9 (Version None)
Quarter: 2010Q2

REPORT INFORMATION
  Report Type: 
  Country: None (occurrence: None)
  Receive Date: 20100629
  Receipt Date: 20081104
  Transmission Date: 20101027
  Serious: No
  Sender: FDA-Public Use
  Company Number: US-PFIZER INC-2008093377

PATIENT
  Sex: Female

DRUGS (3)
  1. TIKOSYN [Suspect]
     Indication: ATRIAL FIBRILLATION
     Route: 048
     Dates: start: 20081001
  2. ASPIRINE [Concomitant]
  3. PLAVIX [Concomitant]

REACTIONS (1)
  - ELECTROCARDIOGRAM NORMAL [None]
